FAERS Safety Report 9994788 (Version 1)
Quarter: 2014Q1

REPORT INFORMATION
  Report Type: Spontaneous
  Country: US (occurrence: None)
  Receive Date: 20140306
  Receipt Date: 20140306
  Transmission Date: 20141002
  Serious: Yes (Other)
  Sender: FDA-Public Use
  Company Number: IPC201402-000101

PATIENT
  Age: 31 Year
  Sex: Female

DRUGS (3)
  1. LOSARTAN [Suspect]
     Indication: HYPERTENSION
  2. NIFEDIPINE (NIFEDIPINE) (NIFEDIPINE) [Concomitant]
  3. CLONIDINE (CLONIDINE) [Concomitant]

REACTIONS (1)
  - Angioedema [None]
